FAERS Safety Report 9963513 (Version 1)
Quarter: 2014Q1

REPORT INFORMATION
  Report Type: Report from Study
  Country: US (occurrence: US)
  Receive Date: 20140305
  Receipt Date: 20140305
  Transmission Date: 20141002
  Serious: Yes (Hospitalization, Other)
  Sender: FDA-Public Use
  Company Number: US-ABBVIE-13P-163-1118264-00

PATIENT
  Age: 27 Year
  Sex: Female
  Weight: 126.21 kg

DRUGS (1)
  1. HUMIRA [Suspect]
     Indication: PSORIASIS
     Route: 058
     Dates: start: 2009

REACTIONS (2)
  - Spinal compression fracture [Recovering/Resolving]
  - Road traffic accident [Recovering/Resolving]
